FAERS Safety Report 10265471 (Version 1)
Quarter: 2014Q2

REPORT INFORMATION
  Report Type: Spontaneous
  Country: US (occurrence: None)
  Receive Date: 20140624
  Receipt Date: 20140624
  Transmission Date: 20141212
  Serious: Yes (Hospitalization)
  Sender: FDA-Public Use
  Company Number: 2014NUEUSA00343

PATIENT
  Age: 86 Year
  Sex: Female

DRUGS (17)
  1. NUEDEXTA [Suspect]
     Indication: AFFECT LABILITY
     Dates: start: 20140513, end: 201406
  2. LEXAPRO (ESCITALOPRAM OXALATE) [Concomitant]
  3. ATIVAN (LORAZEPAM) [Concomitant]
  4. REMERON (MIRTAZAPINE) [Concomitant]
  5. TYLENOL (PARACETAMOL) [Concomitant]
  6. TENORMIN (ATENOLOL) [Concomitant]
  7. CALCIUM W/VITAMIN D (CALCIUM, VITAMIN D NOS) [Concomitant]
  8. DIOVAN (VALSARTAN) [Concomitant]
  9. COLACE (DOCUSATE SODIUM) [Concomitant]
  10. FOSAMAX (ALENDRONATE SODIUM) [Concomitant]
  11. NORCO (HYDROCODONE BITARTRATE, PARACETAMOL) [Concomitant]
  12. PRILOSEC (OMEPRAZOLE) [Concomitant]
  13. PLAVIX (CLOPIDOGREL BISULFATE) [Concomitant]
  14. ACETAMINOPHEN (ACETAMINOPHEN) [Concomitant]
  15. ALBUTEROL (SALBUTAMOL SULFATE) [Concomitant]
  16. MYLANTA (CALCIUM CARBONATE) [Concomitant]
  17. MIRALAX (MACROGOL) [Concomitant]

REACTIONS (3)
  - Dyspnoea [None]
  - Pneumonia [None]
  - Unresponsive to stimuli [None]
